FAERS Safety Report 8791153 (Version 1)
Quarter: 2012Q4

REPORT INFORMATION
  Report Type: Spontaneous
  Country: US (occurrence: None)
  Receive Date: 20120914
  Receipt Date: 20120914
  Transmission Date: 20130627
  Serious: Yes (Hospitalization)
  Sender: FDA-Public Use
  Company Number: None

PATIENT
  Age: 73 None
  Sex: Female

DRUGS (1)
  1. XELODA [Suspect]
     Indication: MALIGNANT BREAST NEOPLASM
     Dosage: 1500 mg bid for 14 days on 7 po
     Route: 048
     Dates: start: 20120630, end: 20120910

REACTIONS (4)
  - Oropharyngeal pain [None]
  - Stomatitis [None]
  - Dehydration [None]
  - Haemoglobin decreased [None]
